FAERS Safety Report 17474358 (Version 1)
Quarter: 2020Q1

REPORT INFORMATION
  Report Type: Report from Study
  Country: JP (occurrence: JP)
  Receive Date: 20200228
  Receipt Date: 20200228
  Transmission Date: 20200409
  Serious: Yes (Hospitalization, Other)
  Sender: FDA-Public Use
  Company Number: JP-JNJFOC-20190624377

PATIENT
  Age: 26 Year
  Sex: Male
  Weight: 49.4 kg

DRUGS (32)
  1. AZANIN [Concomitant]
     Active Substance: AZATHIOPRINE
  2. REBAMIPIDE [Concomitant]
     Active Substance: REBAMIPIDE
  3. LEVOFLOXACIN. [Concomitant]
     Active Substance: LEVOFLOXACIN
  4. BIOFERMIN                          /07958301/ [Concomitant]
  5. MAGNESIUM OXIDE. [Concomitant]
     Active Substance: MAGNESIUM OXIDE
  6. KAYTWO N [Concomitant]
     Active Substance: MENATETRENONE
  7. SOLDEM 3A [Concomitant]
     Active Substance: CARBOHYDRATES\POTASSIUM CHLORIDE\SODIUM CHLORIDE\SODIUM LACTATE
  8. ROPION [Concomitant]
     Active Substance: FLURBIPROFEN AXETIL
  9. PANTOL                             /00223901/ [Concomitant]
     Active Substance: PANTHENOL
  10. BIO-THREE [Concomitant]
     Active Substance: HERBALS
  11. BIOFERMIN R [Concomitant]
     Active Substance: DIETARY SUPPLEMENT\PROBIOTICS
  12. LOXOPROFEN [Concomitant]
     Active Substance: LOXOPROFEN
  13. PREDONINE [Concomitant]
     Active Substance: PREDNISOLONE
  14. VITAMEDIN                          /00176001/ [Concomitant]
     Active Substance: CYANOCOBALAMIN\PYRIDOXINE HYDROCHLORIDE\THIAMINE
  15. ISOTONIC SODIUM CHLORIDE SOLUTION [Concomitant]
     Active Substance: SODIUM CHLORIDE
  16. FENTANYL. [Concomitant]
     Active Substance: FENTANYL
     Dosage: FENTANYL CITRATE:0.1MG
     Route: 065
  17. ZENTACORT [Concomitant]
     Active Substance: BUDESONIDE
     Indication: CROHN^S DISEASE
  18. FERROUS SODIUM CITRATE [Concomitant]
     Active Substance: SODIUM FERROUS CITRATE
  19. PANTOSIN [Concomitant]
     Active Substance: PANTETHINE
  20. CEFMETAZOLE SODIUM [Concomitant]
     Active Substance: CEFMETAZOLE SODIUM
  21. STELARA [Suspect]
     Active Substance: USTEKINUMAB
     Indication: CROHN^S DISEASE
     Dosage: USTEKINUMAB(GENETICAL RECOMBINATION):130 MG
     Route: 042
     Dates: start: 20180609
  22. SENNOSIDE                          /00571901/ [Concomitant]
     Active Substance: SENNOSIDES A AND B
  23. ASCORBIC ACID. [Concomitant]
     Active Substance: ASCORBIC ACID
  24. PENTASA [Concomitant]
     Active Substance: MESALAMINE
  25. FLAGYL [Concomitant]
     Active Substance: METRONIDAZOLE\METRONIDAZOLE HYDROCHLORIDE
  26. CIPROXAN [Concomitant]
     Active Substance: CIPROFLOXACIN
  27. PHYSIO 140 [Concomitant]
     Active Substance: CALCIUM GLUCONATE\DEXTROSE\MAGNESIUM CHLORIDE\POTASSIUM CHLORIDE\SODIUM ACETATE\SODIUM CHLORIDE\TRISODIUM CITRATE DIHYDRATE
  28. BFLUID [Concomitant]
     Active Substance: AMINO ACIDS\DEXTROSE\ELECTROLYTES NOS\VITAMINS
  29. GASTER [Concomitant]
     Active Substance: FAMOTIDINE
  30. GASTROM [Concomitant]
     Active Substance: ECABET SODIUM
  31. ACELIO [Concomitant]
     Active Substance: ACETAMINOPHEN
  32. ADELAVIN NO.9 [Concomitant]

REACTIONS (3)
  - Large intestinal stenosis [Recovered/Resolved]
  - Anal abscess [Recovered/Resolved]
  - Upper respiratory tract inflammation [Recovering/Resolving]

NARRATIVE: CASE EVENT DATE: 20180616
